FAERS Safety Report 8135286-3 (Version None)
Quarter: 2012Q1

REPORT INFORMATION
  Report Type: 
  Country: None (occurrence: None)
  Receive Date: 20120214
  Receipt Date: 20120120
  Transmission Date: 20120608
  Serious: Yes (Hospitalization, Other)
  Sender: FDA-Public Use
  Company Number: CA-JNJFOC-20120200434

PATIENT
  Sex: Male
  Weight: 66.2 kg

DRUGS (7)
  1. ZOPICLONE [Concomitant]
  2. METHOTREXATE [Concomitant]
  3. SEROQUEL [Concomitant]
  4. REMICADE [Suspect]
     Indication: ANKYLOSING SPONDYLITIS
     Route: 042
     Dates: start: 20040705, end: 20111124
  5. FOLIC ACID [Concomitant]
  6. PERCOCET [Concomitant]
  7. ASACOL [Concomitant]

REACTIONS (3)
  - BRAIN MASS [None]
  - DEPRESSION [None]
  - DEMYELINATION [None]
